FAERS Safety Report 7110805-4 (Version None)
Quarter: 2010Q4

REPORT INFORMATION
  Report Type: 
  Country: None (occurrence: None)
  Receive Date: 20101118
  Receipt Date: 20101111
  Transmission Date: 20110411
  Serious: Yes (Hospitalization)
  Sender: FDA-Public Use
  Company Number: JP-EISAI INC.-E2090-01301-SPO-JP

PATIENT
  Sex: Female
  Weight: 48.5 kg

DRUGS (4)
  1. EXCEGRAN [Suspect]
     Indication: CONVULSION PROPHYLAXIS
     Route: 048
     Dates: start: 20100519, end: 20100611
  2. DEPAKENE [Suspect]
     Route: 048
  3. MUCOSTA [Suspect]
     Route: 048
  4. 8-HOUR BAYER [Concomitant]

REACTIONS (1)
  - OCULOMUCOCUTANEOUS SYNDROME [None]
